FAERS Safety Report 15711046 (Version 2)
Quarter: 2018Q4

REPORT INFORMATION
  Report Type: Spontaneous
  Country: KR (occurrence: KR)
  Receive Date: 20181211
  Receipt Date: 20181217
  Transmission Date: 20190205
  Serious: Yes (Other)
  Sender: FDA-Public Use
  Company Number: PHHY2018KR177747

PATIENT
  Age: 70 Year
  Sex: Male
  Weight: 64 kg

DRUGS (5)
  1. EXJADE [Suspect]
     Active Substance: DEFERASIROX
     Dosage: 500 MG, UNK
     Route: 065
     Dates: start: 200901
  2. EXJADE [Suspect]
     Active Substance: DEFERASIROX
     Dosage: 1750 MG, UNK
     Route: 065
     Dates: start: 201708, end: 201803
  3. EXJADE [Suspect]
     Active Substance: DEFERASIROX
     Dosage: 2000 MG, UNK
     Route: 065
     Dates: start: 201212
  4. EXJADE [Suspect]
     Active Substance: DEFERASIROX
     Indication: APLASIA PURE RED CELL
     Dosage: 1080 MG, UNK
     Route: 065
     Dates: start: 201803
  5. EXJADE [Suspect]
     Active Substance: DEFERASIROX
     Indication: APLASIA PURE RED CELL
     Dosage: 750 MG, UNK
     Route: 065
     Dates: start: 200803

REACTIONS (3)
  - Nausea [Unknown]
  - Chronic kidney disease [Unknown]
  - Serum ferritin increased [Unknown]

NARRATIVE: CASE EVENT DATE: 200803
